FAERS Safety Report 7881199-1 (Version None)
Quarter: 2011Q4

REPORT INFORMATION
  Report Type: 
  Country: None (occurrence: None)
  Receive Date: 20111101
  Receipt Date: 20110607
  Transmission Date: 20120403
  Serious: No
  Sender: FDA-Public Use
  Company Number: US-AMGEN-USASP2011029508

PATIENT
  Sex: Male

DRUGS (1)
  1. ENBREL [Suspect]
     Indication: PSORIASIS
     Dosage: 25 MG, 2 TIMES/WK
     Dates: start: 20090228

REACTIONS (4)
  - INJECTION SITE PAIN [None]
  - INJECTION SITE HYPERSENSITIVITY [None]
  - INJECTION SITE DISCOLOURATION [None]
  - INJECTION SITE MASS [None]
